FAERS Safety Report 22766236 (Version 4)
Quarter: 2023Q4

REPORT INFORMATION
  Report Type: Spontaneous
  Country: BR (occurrence: BR)
  Receive Date: 20230731
  Receipt Date: 20231002
  Transmission Date: 20240110
  Serious: Yes (Other)
  Sender: FDA-Public Use
  Company Number: BR-PFIZER INC-202300256179

PATIENT
  Sex: Female

DRUGS (7)
  1. GENOTROPIN [Suspect]
     Active Substance: SOMATROPIN
     Indication: Muscle disorder
     Dosage: 0.3 MG, DAILY
     Route: 058
  2. GENOTROPIN [Suspect]
     Active Substance: SOMATROPIN
     Indication: Sexual dysfunction
     Dosage: 0.6 MG, DAILY
  3. OXANDROLONE [Concomitant]
     Active Substance: OXANDROLONE
     Indication: Muscle disorder
     Dosage: 5 MG, DAILY
     Route: 048
  4. OXANDROLONE [Concomitant]
     Active Substance: OXANDROLONE
     Indication: Sexual dysfunction
  5. OZEMPIC [Concomitant]
     Active Substance: SEMAGLUTIDE
     Indication: Muscle disorder
     Dosage: FIRST WEEK 2 CLICKS
     Route: 058
  6. OZEMPIC [Concomitant]
     Active Substance: SEMAGLUTIDE
     Indication: Sexual dysfunction
     Dosage: SECOND WEEK 6 CLICKS
  7. OZEMPIC [Concomitant]
     Active Substance: SEMAGLUTIDE
     Dosage: THIRD WEEK FORWARD 9 CLICKS

REACTIONS (5)
  - Ocular hyperaemia [Unknown]
  - Accidental exposure to product [Unknown]
  - Exposure via eye contact [Unknown]
  - Device leakage [Unknown]
  - Off label use [Unknown]
